FAERS Safety Report 6565030-2 (Version None)
Quarter: 2010Q1

REPORT INFORMATION
  Report Type: 
  Country: None (occurrence: None)
  Receive Date: 20100201
  Receipt Date: 20100126
  Transmission Date: 20100710
  Serious: Yes (Hospitalization)
  Sender: FDA-Public Use
  Company Number: GR-BRISTOL-MYERS SQUIBB COMPANY-14952402

PATIENT
  Age: 82 Year
  Sex: Female

DRUGS (4)
  1. APROVEL [Suspect]
     Indication: HYPERTENSION
  2. SOLOSA [Suspect]
     Indication: DIABETES MELLITUS
  3. LOPRESSOR [Concomitant]
  4. SINTROM [Concomitant]

REACTIONS (1)
  - HYPONATRAEMIA [None]
